FAERS Safety Report 6391349-4 (Version None)
Quarter: 2009Q4

REPORT INFORMATION
  Report Type: 
  Country: None (occurrence: None)
  Receive Date: 20091006
  Receipt Date: 20091006
  Transmission Date: 20100525
  Serious: Yes (Other)
  Sender: FDA-Public Use
  Company Number: None

PATIENT
  Age: 36 Year
  Sex: Female
  Weight: 54.4316 kg

DRUGS (1)
  1. PAROXETINE HCL [Suspect]
     Indication: ANXIETY
     Dosage: 1 DAILY PO
     Route: 048
     Dates: start: 20090601

REACTIONS (5)
  - CELLULITIS [None]
  - DEPRESSION [None]
  - FEELING COLD [None]
  - HYPERHIDROSIS [None]
  - SYNCOPE [None]
